FAERS Safety Report 18055241 (Version 6)
Quarter: 2021Q4

REPORT INFORMATION
  Report Type: Spontaneous
  Country: US (occurrence: US)
  Receive Date: 20200722
  Receipt Date: 20211101
  Transmission Date: 20220303
  Serious: Yes (Other)
  Sender: FDA-Public Use
  Company Number: US-DECIPHERA PHARMACEUTICALS LLC-2020-US-000082

PATIENT
  Age: 52 Year
  Sex: Male

DRUGS (6)
  1. QINLOCK [Suspect]
     Active Substance: RIPRETINIB
     Indication: Gastrointestinal stromal tumour
     Dosage: 150 MILLIGRAM, QD
     Route: 048
     Dates: start: 20200701
  2. QINLOCK [Suspect]
     Active Substance: RIPRETINIB
     Dosage: 150 MILLIGRAM, QD
     Route: 048
     Dates: start: 20201011
  3. QINLOCK [Suspect]
     Active Substance: RIPRETINIB
     Dosage: 150 MILLIGRAM, QD
     Route: 048
  4. QINLOCK [Suspect]
     Active Substance: RIPRETINIB
     Dosage: 150 MILLIGRAM, QD
     Route: 048
  5. TRAMADOL [Concomitant]
     Active Substance: TRAMADOL
     Indication: Product used for unknown indication
     Dosage: UNK
     Route: 065
  6. AMBIEN [Concomitant]
     Active Substance: ZOLPIDEM TARTRATE
     Indication: Product used for unknown indication
     Dosage: UNK
     Route: 065

REACTIONS (12)
  - Feeling abnormal [Unknown]
  - COVID-19 [Unknown]
  - Pyrexia [Unknown]
  - Headache [Unknown]
  - Fatigue [Unknown]
  - Pain [Recovered/Resolved]
  - Hair texture abnormal [Unknown]
  - Hair colour changes [Unknown]
  - Asthenia [Unknown]
  - Myalgia [Unknown]
  - Nausea [Unknown]
  - Alopecia [Recovered/Resolved]

NARRATIVE: CASE EVENT DATE: 20200702
